FAERS Safety Report 7772955-9 (Version None)
Quarter: 2011Q3

REPORT INFORMATION
  Report Type: 
  Country: None (occurrence: None)
  Receive Date: 20110922
  Receipt Date: 20100810
  Transmission Date: 20111222
  Serious: No
  Sender: FDA-Public Use
  Company Number: US-ASTRAZENECA-2010SE37492

PATIENT
  Sex: Female

DRUGS (5)
  1. XANAX [Concomitant]
     Indication: ANXIETY
  2. SEROQUEL [Suspect]
     Route: 048
     Dates: start: 20090101
  3. SEROQUEL [Suspect]
     Indication: SLEEP DISORDER
     Dosage: 50 MG IN MORNING AND 400 MG AT NIGHT
     Route: 048
  4. SEROQUEL [Suspect]
     Indication: ANXIETY
     Dosage: 50 MG IN MORNING AND 400 MG AT NIGHT
     Route: 048
  5. SEROQUEL [Suspect]
     Route: 048
     Dates: start: 20090101

REACTIONS (8)
  - THINKING ABNORMAL [None]
  - VISUAL ACUITY REDUCED [None]
  - FEELING JITTERY [None]
  - WRONG TECHNIQUE IN DRUG USAGE PROCESS [None]
  - INSOMNIA [None]
  - WEIGHT INCREASED [None]
  - MOOD SWINGS [None]
  - DRUG DOSE OMISSION [None]
